FAERS Safety Report 24669695 (Version 1)
Quarter: 2024Q4

REPORT INFORMATION
  Report Type: Report from Study
  Country: ES (occurrence: ES)
  Receive Date: 20241127
  Receipt Date: 20241127
  Transmission Date: 20250114
  Serious: Yes (Other)
  Sender: SANOFI AVENTIS
  Company Number: ES-SA-2024SA344229

PATIENT

DRUGS (7)
  1. ISATUXIMAB [Suspect]
     Active Substance: ISATUXIMAB
     Indication: Plasma cell myeloma refractory
     Dosage: 10 MG/KG, QW (ON DAYS 1, 8, 15, AND 22)
     Route: 042
     Dates: start: 202205
  2. ISATUXIMAB [Suspect]
     Active Substance: ISATUXIMAB
     Dosage: 10 MG/KG, QOW  (ON DAYS 1 AND 15 OF EACH CYCLE, EVERY 28 DAYS)
     Route: 042
     Dates: end: 202405
  3. DEXAMETHASONE [Suspect]
     Active Substance: DEXAMETHASONE
     Indication: Plasma cell myeloma refractory
     Dosage: 20 MG (ON DAYS 1, 2, 8, 9, 15, 16, 22, AND 23)
     Route: 048
     Dates: start: 202205, end: 202405
  4. CARFILZOMIB [Suspect]
     Active Substance: CARFILZOMIB
     Indication: Plasma cell myeloma refractory
     Dosage: 20 MG/M2 ON DAYS 1 AND 2 AND 56 MG/M2 ON ON DAYS 8, 9, 15, AND 16
     Route: 042
     Dates: start: 202205
  5. CARFILZOMIB [Suspect]
     Active Substance: CARFILZOMIB
     Dosage: 70 MG/M2, QW (ON DAYS 1, 8 AND 15)
     Route: 042
     Dates: end: 202405
  6. UNSPECIFIED INGREDIENT [Suspect]
     Active Substance: UNSPECIFIED INGREDIENT
     Dosage: UNK
  7. ACYCLOVIR [Concomitant]
     Active Substance: ACYCLOVIR
     Indication: Prophylaxis
     Dosage: UNK
     Dates: start: 202205

REACTIONS (1)
  - Upper gastrointestinal haemorrhage [Unknown]
